FAERS Safety Report 4720601-0 (Version None)
Quarter: 2005Q3

REPORT INFORMATION
  Report Type: 
  Country: None (occurrence: None)
  Receive Date: 20050719
  Receipt Date: 20041115
  Transmission Date: 20060218
  Serious: Yes (Other)
  Sender: FDA-Public Use
  Company Number: 2004107678

PATIENT
  Sex: Female

DRUGS (1)
  1. CELEBREX [Suspect]
     Indication: ILL-DEFINED DISORDER
     Dates: start: 20041113

REACTIONS (6)
  - ERYTHEMA [None]
  - EYE SWELLING [None]
  - HOT FLUSH [None]
  - PRURITUS [None]
  - SKIN EXFOLIATION [None]
  - URTICARIA [None]
